FAERS Safety Report 11968952 (Version 1)
Quarter: 2016Q1

REPORT INFORMATION
  Report Type: Report from Study
  Country: US (occurrence: US)
  Receive Date: 20160128
  Receipt Date: 20160128
  Transmission Date: 20160526
  Serious: No
  Sender: FDA-Public Use
  Company Number: PHEH2014US025179

PATIENT
  Sex: Female

DRUGS (1)
  1. EXELON PATCH [Suspect]
     Active Substance: RIVASTIGMINE
     Indication: PRODUCT USED FOR UNKNOWN INDICATION
     Dosage: 13.3 MG, QD
     Route: 062

REACTIONS (5)
  - Feeling abnormal [Unknown]
  - Thought blocking [Unknown]
  - Hypoacusis [Unknown]
  - Cardiac disorder [Unknown]
  - Memory impairment [Unknown]
